FAERS Safety Report 14096998 (Version 1)
Quarter: 2017Q4

REPORT INFORMATION
  Report Type: Spontaneous
  Country: US (occurrence: None)
  Receive Date: 20171016
  Receipt Date: 20171016
  Transmission Date: 20180321
  Serious: Yes (Hospitalization)
  Sender: FDA-Public Use
  Company Number: None

PATIENT
  Age: 83 Year
  Sex: Male

DRUGS (1)
  1. WARFARIN [Suspect]
     Active Substance: WARFARIN
     Indication: ATRIAL FIBRILLATION
     Dosage: MG EVERY DAY PO
     Route: 048
     Dates: start: 20151113, end: 20170623

REACTIONS (7)
  - Haemoglobin decreased [None]
  - Gastric ulcer [None]
  - Duodenal ulcer [None]
  - Pain in extremity [None]
  - International normalised ratio increased [None]
  - Contusion [None]
  - Fatigue [None]

NARRATIVE: CASE EVENT DATE: 20170626
